FAERS Safety Report 24010401 (Version 1)
Quarter: 2024Q2

REPORT INFORMATION
  Report Type: Spontaneous
  Country: US (occurrence: US)
  Receive Date: 20240625
  Receipt Date: 20240625
  Transmission Date: 20240715
  Serious: Yes (Hospitalization, Other)
  Sender: FDA-Public Use
  Company Number: US-PFIZER INC-PV202400082044

PATIENT
  Age: 84 Year
  Sex: Female
  Weight: 74.825 kg

DRUGS (4)
  1. VYNDAMAX [Suspect]
     Active Substance: TAFAMIDIS
     Indication: Cardiac failure
     Dosage: 1 CAP(S) ORALLY ONCE A DAY
     Route: 048
  2. VYNDAMAX [Suspect]
     Active Substance: TAFAMIDIS
     Indication: Cardiac amyloidosis
  3. VYNDAMAX [Suspect]
     Active Substance: TAFAMIDIS
     Indication: Cardiac amyloidosis
  4. ELIQUIS [Concomitant]
     Active Substance: APIXABAN
     Indication: Acute coronary syndrome
     Dosage: UNK

REACTIONS (16)
  - Cardiac failure acute [Unknown]
  - Atrial fibrillation [Unknown]
  - Atrial fibrillation [Unknown]
  - Heart failure with preserved ejection fraction [Unknown]
  - Renal impairment [Unknown]
  - Cardiac failure congestive [Unknown]
  - Arrhythmia [Unknown]
  - Heart rate irregular [Unknown]
  - Dyspnoea [Recovering/Resolving]
  - Blood creatinine abnormal [Unknown]
  - Peripheral swelling [Recovering/Resolving]
  - Palpitations [Unknown]
  - Generalised oedema [Unknown]
  - Fatigue [Unknown]
  - Hypertension [Unknown]
  - Peripheral venous disease [Unknown]

NARRATIVE: CASE EVENT DATE: 20240401
